FAERS Safety Report 22386896 (Version 1)
Quarter: 2023Q2

REPORT INFORMATION
  Report Type: Spontaneous
  Country: US (occurrence: US)
  Receive Date: 20230531
  Receipt Date: 20230531
  Transmission Date: 20230722
  Serious: Yes (Other)
  Sender: FDA-Public Use
  Company Number: US-drreddys-SPO/USA/23/0166067

PATIENT
  Age: 21 Year

DRUGS (1)
  1. ZENATANE [Suspect]
     Active Substance: ISOTRETINOIN
     Indication: Product used for unknown indication
     Dosage: RMA ISSUE DATE: 12 DECEMBER 2022 02:01:29 PM, 18 JANUARY 2023 01:37:19 PM, 22 FEBRUARY 2023 12:12:47

REACTIONS (1)
  - Mood swings [Unknown]
